FAERS Safety Report 10169729 (Version 3)
Quarter: 2019Q3

REPORT INFORMATION
  Report Type: Report from Study
  Country: US (occurrence: US)
  Receive Date: 20140513
  Receipt Date: 20190802
  Transmission Date: 20191004
  Serious: Yes (Death, Hospitalization)
  Sender: FDA-Public Use
  Company Number: US-ACTELION-A-NJ2014-98585

PATIENT
  Age: 29 Year
  Sex: Female

DRUGS (9)
  1. SILDENAFIL. [Concomitant]
     Active Substance: SILDENAFIL
     Dosage: 20 MG, BID
  2. ALLOPURINOL. [Concomitant]
     Active Substance: ALLOPURINOL
     Dosage: 200 MG, QD
  3. BUMETANIDE. [Concomitant]
     Active Substance: BUMETANIDE
     Dosage: 2 MG, QD
  4. VITAMIN D3 [Concomitant]
     Active Substance: CHOLECALCIFEROL
     Dosage: 50000 UNK
  5. JANUVIA [Concomitant]
     Active Substance: SITAGLIPTIN PHOSPHATE
     Dosage: 500 MG, QD
  6. TRACLEER [Suspect]
     Active Substance: BOSENTAN
     Indication: PULMONARY ARTERIAL HYPERTENSION
     Dosage: 125 MG, BID
     Route: 048
     Dates: start: 200207
  7. LEVOTHYROXINE. [Concomitant]
     Active Substance: LEVOTHYROXINE
     Dosage: 112 MCG, QD
  8. DIGOXIN. [Concomitant]
     Active Substance: DIGOXIN
     Dosage: 125 MCG, QD
  9. CALCITRIOL. [Concomitant]
     Active Substance: CALCITRIOL
     Dosage: 0.5 MCG, Q1WEEK

REACTIONS (5)
  - Right-to-left cardiac shunt [Fatal]
  - Pulmonary hypertension [Fatal]
  - Dehydration [Unknown]
  - Atrioventricular septal defect [Fatal]
  - Chronic kidney disease [Fatal]

NARRATIVE: CASE EVENT DATE: 20140425
